FAERS Safety Report 6159170-X (Version None)
Quarter: 2009Q2

REPORT INFORMATION
  Report Type: 
  Country: None (occurrence: None)
  Receive Date: 20090415
  Receipt Date: 20090406
  Transmission Date: 20091009
  Serious: No
  Sender: FDA-Public Use
  Company Number: 20096542

PATIENT
  Age: 12 Year
  Sex: Female

DRUGS (1)
  1. LIORESAL [Suspect]
     Indication: MUSCLE SPASTICITY
     Dosage: 184.1 MCG, DAILY, INTRATHECAL
     Route: 037

REACTIONS (9)
  - ABDOMINAL PAIN LOWER [None]
  - BLOOD PRESSURE DIASTOLIC DECREASED [None]
  - CATHETER SITE SWELLING [None]
  - COGNITIVE DISORDER [None]
  - DEVICE MALFUNCTION [None]
  - HEART RATE INCREASED [None]
  - MUSCLE SPASTICITY [None]
  - PAIN [None]
  - WITHDRAWAL SYNDROME [None]
